FAERS Safety Report 5011242-9 (Version None)
Quarter: 2006Q2

REPORT INFORMATION
  Report Type: 
  Country: None (occurrence: None)
  Receive Date: 20060523
  Receipt Date: 20060523
  Transmission Date: 20061013
  Serious: Yes (Hospitalization)
  Sender: FDA-Public Use
  Company Number: None

PATIENT
  Age: 74 Year
  Sex: Male
  Weight: 95.2554 kg

DRUGS (2)
  1. ZOSYN [Suspect]
     Indication: SEPTIC SHOCK
     Dosage: 2.25 GM Q8H   IV
     Route: 042
     Dates: start: 20060510, end: 20060515
  2. CEFAZOLIN [Suspect]
     Indication: PROPHYLAXIS
     Dosage: 1 G  Q24H   IV
     Route: 042
     Dates: start: 20060510, end: 20060515

REACTIONS (1)
  - DIARRHOEA [None]
